FAERS Safety Report 9645514 (Version 1)
Quarter: 2013Q4

REPORT INFORMATION
  Report Type: Spontaneous
  Country: US (occurrence: None)
  Receive Date: 20131023
  Receipt Date: 20131023
  Transmission Date: 20140711
  Serious: Yes (Hospitalization)
  Sender: FDA-Public Use
  Company Number: 2013AP009104

PATIENT
  Age: 19 Year
  Sex: Male

DRUGS (4)
  1. CITALOPRAM [Suspect]
     Route: 048
  2. LAMOTRIGINE TABLETS [Suspect]
     Route: 048
  3. ARIPIPRAZOLE [Concomitant]
  4. LORAZEPAM [Concomitant]

REACTIONS (7)
  - Ventricular tachycardia [None]
  - Bundle branch block right [None]
  - Electrocardiogram QRS complex prolonged [None]
  - Serotonin syndrome [None]
  - Self injurious behaviour [None]
  - Unresponsive to stimuli [None]
  - Overdose [None]
